FAERS Safety Report 9254300 (Version 1)
Quarter: 2013Q1

REPORT INFORMATION
  Report Type: Spontaneous
  Country: US (occurrence: None)
  Receive Date: 20121203
  Receipt Date: 20121203
  Transmission Date: 20140127
  Serious: Yes (Life-Threatening, Hospitalization, Disabling)
  Sender: FDA-Public Use
  Company Number: 1209USA006251

PATIENT
  Age: 75 Year
  Sex: Female

DRUGS (6)
  1. JANUMET [Suspect]
     Indication: TYPE 2 DIABETES MELLITUS
     Dosage: 50/500, BID, ORAL
     Route: 048
     Dates: start: 201109
  2. GLUCOSAMINE (GLUCOSAMINE) [Concomitant]
  3. DICLOFENAC (DICLOFENAC) [Concomitant]
  4. VENASTAT (HORSE CHESTNUT) [Concomitant]
  5. FERRO (FERROUS SULFATE) (FERROUS SULFATE) [Concomitant]
  6. ZETIA (EZETIMIBE) TABLET [Concomitant]

REACTIONS (1)
  - Pancreatitis [None]
